FAERS Safety Report 18684489 (Version 1)
Quarter: 2020Q4

REPORT INFORMATION
  Report Type: Spontaneous
  Country: CN (occurrence: CN)
  Receive Date: 20201230
  Receipt Date: 20201230
  Transmission Date: 20210114
  Serious: Yes (Other)
  Sender: FDA-Public Use
  Company Number: CN-ASTRAZENECA-2020SF73767

PATIENT
  Age: 32873 Day
  Sex: Male
  Weight: 65 kg

DRUGS (1)
  1. PULMICORT RESPULES [Suspect]
     Active Substance: BUDESONIDE
     Indication: PNEUMONIA
     Route: 055
     Dates: start: 20201214, end: 20201214

REACTIONS (2)
  - Dyspnoea [Recovering/Resolving]
  - Asphyxia [Recovering/Resolving]

NARRATIVE: CASE EVENT DATE: 20201214
